FAERS Safety Report 25619197 (Version 1)
Quarter: 2025Q3

REPORT INFORMATION
  Report Type: Spontaneous
  Country: EU (occurrence: EU)
  Receive Date: 20250729
  Receipt Date: 20250729
  Transmission Date: 20251020
  Serious: Yes (Other)
  Sender: MYLAN
  Company Number: EU-NORDICGR-063146

PATIENT
  Age: 48 Year
  Sex: Female

DRUGS (8)
  1. METHOTREXATE [Suspect]
     Active Substance: METHOTREXATE
     Indication: Rheumatoid arthritis
  2. METHOTREXATE [Suspect]
     Active Substance: METHOTREXATE
     Route: 065
  3. METHOTREXATE [Suspect]
     Active Substance: METHOTREXATE
     Route: 065
  4. METHOTREXATE [Suspect]
     Active Substance: METHOTREXATE
  5. Progestogens nos [Concomitant]
     Indication: Contraception
  6. Progestogens nos [Concomitant]
     Route: 065
  7. Progestogens nos [Concomitant]
     Route: 065
  8. Progestogens nos [Concomitant]

REACTIONS (4)
  - Anogenital dysplasia [Unknown]
  - Cervical dysplasia [Unknown]
  - Vaginal dysplasia [Unknown]
  - Vulvovaginal warts [Unknown]
